FAERS Safety Report 6955624-4 (Version None)
Quarter: 2010Q3

REPORT INFORMATION
  Report Type: 
  Country: None (occurrence: None)
  Receive Date: 20100830
  Receipt Date: 20100818
  Transmission Date: 20110219
  Serious: Yes (Other)
  Sender: FDA-Public Use
  Company Number: AT-PFIZER INC-2010103633

PATIENT
  Age: 69 Year
  Sex: Female

DRUGS (1)
  1. ZITHROMAX [Suspect]
     Dosage: 500 MG, 1X/DAY
     Route: 048
     Dates: start: 20090928, end: 20090930

REACTIONS (7)
  - BACTERIAL INFECTION [None]
  - ENCEPHALITIS [None]
  - FINE MOTOR DELAY [None]
  - MOVEMENT DISORDER [None]
  - NEUROLOGICAL SYMPTOM [None]
  - RASH [None]
  - TREMOR [None]
